FAERS Safety Report 5750055-7 (Version None)
Quarter: 2008Q2

REPORT INFORMATION
  Report Type: 
  Country: None (occurrence: None)
  Receive Date: 20080527
  Receipt Date: 20080515
  Transmission Date: 20081010
  Serious: Yes (Other)
  Sender: FDA-Public Use
  Company Number: US-PFIZER INC-2008031332

PATIENT
  Sex: Female
  Weight: 74.8 kg

DRUGS (9)
  1. DILANTIN [Suspect]
     Indication: CONVULSION
     Route: 048
  2. CALCITONIN [Concomitant]
  3. FOSAMAX [Concomitant]
  4. SYNTHROID [Concomitant]
  5. TIMOLOL MALEATE [Concomitant]
  6. XALATAN [Concomitant]
  7. CYCLOSPORINE [Concomitant]
  8. FOSAMAX PLUS D [Concomitant]
  9. ALL OTHER THERAPEUTIC PRODUCTS [Concomitant]

REACTIONS (11)
  - ANXIETY [None]
  - BLOOD THYROID STIMULATING HORMONE DECREASED [None]
  - CONFUSIONAL STATE [None]
  - DIZZINESS [None]
  - DRUG LEVEL FLUCTUATING [None]
  - FATIGUE [None]
  - HEPATIC ENZYME INCREASED [None]
  - MALAISE [None]
  - SLUGGISHNESS [None]
  - THYROID FUNCTION TEST ABNORMAL [None]
  - TREMOR [None]
